FAERS Safety Report 19959766 (Version 1)
Quarter: 2021Q4

REPORT INFORMATION
  Report Type: Spontaneous
  Country: US (occurrence: US)
  Receive Date: 20211014
  Receipt Date: 20211014
  Transmission Date: 20220304
  Serious: Yes (Other)
  Sender: FDA-Public Use
  Company Number: None

PATIENT
  Age: 62 Year
  Sex: Female
  Weight: 65.4 kg

DRUGS (2)
  1. DEVICE [Suspect]
     Active Substance: DEVICE
  2. SODIUM BICARBONATE [Suspect]
     Active Substance: SODIUM BICARBONATE

REACTIONS (2)
  - Drug delivery system malfunction [None]
  - Incorrect drug administration rate [None]

NARRATIVE: CASE EVENT DATE: 20211011
